FAERS Safety Report 13483994 (Version 1)
Quarter: 2017Q2

REPORT INFORMATION
  Report Type: Spontaneous
  Country: US (occurrence: US)
  Receive Date: 20170425
  Receipt Date: 20170425
  Transmission Date: 20170830
  Serious: Yes (Disabling)
  Sender: FDA-Public Use
  Company Number: None

PATIENT
  Age: 42 Year
  Sex: Female
  Weight: 67.05 kg

DRUGS (10)
  1. CLARITIN [Suspect]
     Active Substance: LORATADINE
     Indication: SKIN INFECTION
     Route: 048
  2. CALCIUM [Concomitant]
     Active Substance: CALCIUM
  3. FISHOIL [Concomitant]
  4. MONTELUCAST SODIUM [Suspect]
     Active Substance: MONTELUKAST SODIUM
     Indication: ASTHMA
     Dosage: ?          QUANTITY:30 TABLET(S);?
     Route: 048
     Dates: start: 20160101, end: 20170416
  5. VITAMIN D [Concomitant]
     Active Substance: CHOLECALCIFEROL
  6. CYSTAQ [Concomitant]
  7. MARSHMALLOW ROOT [Concomitant]
  8. CLARITIN [Suspect]
     Active Substance: LORATADINE
     Indication: HYPERSENSITIVITY
     Route: 048
  9. SYMBICORT [Concomitant]
     Active Substance: BUDESONIDE\FORMOTEROL FUMARATE DIHYDRATE
  10. PULMICORT TURBUHALER [Concomitant]
     Active Substance: BUDESONIDE

REACTIONS (7)
  - Malaise [None]
  - Palpitations [None]
  - Dizziness [None]
  - Diarrhoea [None]
  - Anal incontinence [None]
  - Amnesia [None]
  - Presyncope [None]

NARRATIVE: CASE EVENT DATE: 20170111
